FAERS Safety Report 6194859-8 (Version None)
Quarter: 2009Q2

REPORT INFORMATION
  Report Type: 
  Country: None (occurrence: None)
  Receive Date: 20090519
  Receipt Date: 20080926
  Transmission Date: 20091009
  Serious: No
  Sender: FDA-Public Use
  Company Number: US-TYCO HEALTHCARE/MALLINCKRODT-T200801585

PATIENT

DRUGS (16)
  1. METHADONE [Suspect]
     Indication: PAIN
     Dosage: 5 MG, QD
     Route: 048
     Dates: start: 20080902, end: 20080909
  2. METHADONE [Suspect]
     Dosage: 5 MG, BID
     Route: 048
     Dates: start: 20080909, end: 20081001
  3. LYRICA [Suspect]
     Indication: PAIN
     Dosage: 50 MG, QD
     Route: 048
     Dates: start: 20080902, end: 20080907
  4. LYRICA [Suspect]
     Dosage: 50 MG, BID
     Route: 048
     Dates: start: 20080907, end: 20081001
  5. NEURONTIN [Suspect]
     Indication: PAIN
     Dosage: 300 MG, SINGLE
     Dates: start: 20081002
  6. METOPROLOL [Concomitant]
     Indication: HYPERTENSION
     Dosage: 50 MG, BID
     Route: 048
  7. LEVOTHYROXINE SODIUM [Concomitant]
     Indication: HYPOTHYROIDISM
     Dosage: 112 UG, QD
     Route: 048
  8. LORATADINE [Concomitant]
     Indication: HYPERSENSITIVITY
     Dosage: 10 MG, QD
     Route: 048
     Dates: end: 20080901
  9. SINGULAIR [Concomitant]
     Indication: HYPERSENSITIVITY
     Dosage: 10 MG, QD
     Route: 048
  10. AVAPRO [Concomitant]
     Indication: HYPERTENSION
     Dosage: 300 MG, QD
     Route: 048
  11. ADVAIR HFA [Concomitant]
     Dosage: 250/50 UG, BID
     Route: 055
  12. ASPIRIN [Concomitant]
     Dosage: 81 MG, QD
     Route: 048
  13. FLONASE [Concomitant]
     Indication: NASAL CONGESTION
     Dosage: UNK, BID
     Route: 045
  14. SOMA [Concomitant]
     Indication: PAIN
     Dosage: 350 MG, QD (HS)
     Route: 048
  15. EPIDRIN [Concomitant]
     Indication: MIGRAINE
     Dosage: UNK, PRN
     Route: 048
  16. ACETAMINOPHEN AND HYDROCODONE BITARTRATE [Concomitant]
     Indication: PAIN
     Dosage: UNK, PRN
     Route: 048

REACTIONS (6)
  - ABNORMAL DREAMS [None]
  - CHEST DISCOMFORT [None]
  - DIZZINESS [None]
  - LIP SWELLING [None]
  - NASAL CONGESTION [None]
  - NASAL MUCOSAL DISCOLOURATION [None]
